FAERS Safety Report 11123914 (Version 1)
Quarter: 2015Q2

REPORT INFORMATION
  Report Type: Spontaneous
  Country: ES (occurrence: ES)
  Receive Date: 20150520
  Receipt Date: 20150520
  Transmission Date: 20150821
  Serious: Yes (Other)
  Sender: FDA-Public Use
  Company Number: ES-009507513-1505ESP007439

PATIENT
  Age: 62 Year
  Sex: Female
  Weight: 77 kg

DRUGS (1)
  1. EZETROL 10 MG COMPRIMIDOS [Suspect]
     Active Substance: EZETIMIBE
     Indication: BLOOD CHOLESTEROL INCREASED
     Dosage: ONE TABLET A DAY AT ANY TIME
     Route: 048
     Dates: start: 20150101

REACTIONS (3)
  - Fatigue [Not Recovered/Not Resolved]
  - Myalgia [Not Recovered/Not Resolved]
  - Non-cardiac chest pain [Not Recovered/Not Resolved]

NARRATIVE: CASE EVENT DATE: 20150401
